FAERS Safety Report 21400111 (Version 1)
Quarter: 2022Q4

REPORT INFORMATION
  Report Type: Spontaneous
  Country: NL (occurrence: NL)
  Receive Date: 20221002
  Receipt Date: 20221002
  Transmission Date: 20230112
  Serious: Yes (Hospitalization)
  Sender: FDA-Public Use
  Company Number: None

PATIENT
  Sex: Female

DRUGS (5)
  1. PACLITAXEL [Suspect]
     Active Substance: PACLITAXEL
     Indication: Lobular breast carcinoma in situ
     Dosage: 1X PER WEEK VIA I.V. INFUSION FOR 2-4.5 HOURS, INFOPL CONC, FORM STRENGTH 6MG/ML, UNIT DOSE: 1 DF, F
     Route: 042
     Dates: start: 20210319
  2. MORPHINE [Concomitant]
     Active Substance: MORPHINE
     Indication: Product used for unknown indication
     Dosage: SOLUTION FOR INJECTION/INFUSION, INJ/INFOPL, FORM STRENGTH 2MG/ML / BRAND NAME NOT SPECIFIED, THERAP
  3. SODIUM CHLORIDE [Concomitant]
     Active Substance: SODIUM CHLORIDE
     Indication: Product used for unknown indication
     Dosage: INJECTION LIQUID, FORM STRENGTH 9MG/ML / BRAND NAME NOT SPECIFIED, THERAPY START DATE AND END DATE:
  4. ONDANSETRON [Concomitant]
     Active Substance: ONDANSETRON
     Indication: Product used for unknown indication
     Dosage: SUPPOSITORY, 16 MG , THERAPY START DATE AND END DATE: ASKU
  5. METOCLOPRAMIDE [Concomitant]
     Active Substance: METOCLOPRAMIDE
     Indication: Product used for unknown indication
     Dosage: FORM STRENGTH 10MG / BRAND NAME NOT SPECIFIED, THERAPY START DATE AND END DATE: ASKU

REACTIONS (2)
  - Hepatic function abnormal [Unknown]
  - Abdominal pain [Unknown]
